FAERS Safety Report 4358788-4 (Version None)
Quarter: 2004Q2

REPORT INFORMATION
  Report Type: 
  Country: None (occurrence: None)
  Receive Date: 20040511
  Receipt Date: 20040426
  Transmission Date: 20050107
  Serious: Yes (Hospitalization)
  Sender: FDA-Public Use
  Company Number: 196818

PATIENT
  Age: 68 Year
  Sex: Female
  Weight: 67.1324 kg

DRUGS (19)
  1. AVONEX [Suspect]
     Indication: MULTIPLE SCLEROSIS
     Dosage: 30 MCG QW IM
     Dates: start: 20000101, end: 20030901
  2. AVONEX [Suspect]
     Indication: MULTIPLE SCLEROSIS
     Dosage: 30 MCG QW IM
     Dates: start: 20030901
  3. DITROPAN [Concomitant]
  4. NORVASC [Concomitant]
  5. ATENOLOL [Concomitant]
  6. POTASSIUM [Concomitant]
  7. FUROSEMIDE [Concomitant]
  8. ACCUPRIL [Concomitant]
  9. AMARYL [Concomitant]
  10. BACLOFEN [Concomitant]
  11. ACTOS/USA/ [Concomitant]
  12. TEMAZEPAM [Concomitant]
  13. HYDRALAZINE HCL [Concomitant]
  14. IMODIUM A-D [Concomitant]
  15. CARDURA [Concomitant]
  16. MIACALCIN [Concomitant]
  17. MULTIVITAMIN [Concomitant]
  18. ICAPS [Concomitant]
  19. CALCIUM WITH VITAMIN D [Concomitant]

REACTIONS (9)
  - ARTHRITIS [None]
  - BLOOD CHOLESTEROL INCREASED [None]
  - CELLULITIS [None]
  - FATIGUE [None]
  - FIBULA FRACTURE [None]
  - HERPES ZOSTER [None]
  - INFLUENZA LIKE ILLNESS [None]
  - NEURALGIA [None]
  - TIBIA FRACTURE [None]
